FAERS Safety Report 7520348-1 (Version None)
Quarter: 2011Q2

REPORT INFORMATION
  Report Type: 
  Country: None (occurrence: None)
  Receive Date: 20110602
  Receipt Date: 20100520
  Transmission Date: 20111010
  Serious: No
  Sender: FDA-Public Use
  Company Number: US-BAYER-201023659NA

PATIENT

DRUGS (1)
  1. AVELOX [Suspect]
     Indication: ABDOMINAL INFECTION
     Dosage: UNK
     Route: 048

REACTIONS (1)
  - GASTRIC DISORDER [None]
